FAERS Safety Report 13935132 (Version 1)
Quarter: 2017Q3

REPORT INFORMATION
  Report Type: Spontaneous
  Country: JP (occurrence: JP)
  Receive Date: 20170905
  Receipt Date: 20170905
  Transmission Date: 20171127
  Serious: Yes (Hospitalization, Other)
  Sender: FDA-Public Use
  Company Number: JP-NOVOPROD-561199

PATIENT
  Age: 60 Year
  Sex: Male
  Weight: 50 kg

DRUGS (3)
  1. NOVOSEVEN [Suspect]
     Active Substance: COAGULATION FACTOR VIIA RECOMBINANT HUMAN
     Dosage: 10 MG, QD
     Route: 042
     Dates: start: 20170817, end: 201708
  2. NOVOSEVEN [Suspect]
     Active Substance: COAGULATION FACTOR VIIA RECOMBINANT HUMAN
     Dosage: 40 MG, QD
     Route: 042
     Dates: start: 20170822
  3. NOVOSEVEN [Suspect]
     Active Substance: COAGULATION FACTOR VIIA RECOMBINANT HUMAN
     Indication: ACQUIRED HAEMOPHILIA
     Dosage: 5 MG, QD
     Route: 042
     Dates: start: 20170816

REACTIONS (1)
  - Tongue haematoma [Not Recovered/Not Resolved]
